FAERS Safety Report 4995119-0 (Version None)
Quarter: 2006Q2

REPORT INFORMATION
  Report Type: 
  Country: None (occurrence: None)
  Receive Date: 20060508
  Receipt Date: 20050309
  Transmission Date: 20061013
  Serious: Yes (Death, Hospitalization)
  Sender: FDA-Public Use
  Company Number: US-MERCK-0503USA01781

PATIENT
  Age: 94 Year
  Sex: Female
  Weight: 94 kg

DRUGS (15)
  1. VIOXX [Suspect]
     Indication: ARTHRITIS
     Route: 048
     Dates: start: 20040415, end: 20040801
  2. AMITRIPTYLINE HYDROCHLORIDE [Concomitant]
     Route: 065
  3. LORTAB [Concomitant]
     Route: 065
  4. REMERON [Concomitant]
     Route: 048
  5. ZANTAC [Concomitant]
     Route: 065
  6. ALDACTONE [Concomitant]
     Route: 065
  7. ASCORBIC ACID [Concomitant]
     Route: 065
  8. [THERAPY UNSPECIFIED] [Concomitant]
     Route: 065
  9. LASIX [Concomitant]
     Route: 065
  10. ALPRAZOLAM [Concomitant]
     Route: 048
  11. ALPRAZOLAM [Concomitant]
     Route: 065
  12. COUMADIN [Concomitant]
     Route: 065
  13. COUMADIN [Concomitant]
     Route: 065
  14. CALTRATE [Concomitant]
     Route: 065
  15. VITAMIN D (UNSPECIFIED) [Concomitant]
     Route: 065

REACTIONS (14)
  - ANOREXIA [None]
  - ASTHENIA [None]
  - BRADYCARDIA [None]
  - CARDIAC FAILURE CONGESTIVE [None]
  - COAGULATION FACTOR INCREASED [None]
  - COMA [None]
  - DEHYDRATION [None]
  - DEMENTIA [None]
  - DIARRHOEA HAEMORRHAGIC [None]
  - HAEMATEMESIS [None]
  - ORAL INTAKE REDUCED [None]
  - PAIN [None]
  - UPPER GASTROINTESTINAL HAEMORRHAGE [None]
  - VOMITING [None]
